FAERS Safety Report 26186910 (Version 1)
Quarter: 2025Q4

REPORT INFORMATION
  Report Type: Spontaneous
  Country: US (occurrence: US)
  Receive Date: 20251222
  Receipt Date: 20251222
  Transmission Date: 20260118
  Serious: No
  Sender: BAYER HEALTHCARE PHARMACEUTICALS INC.
  Company Number: US-BAYER-2025A167619

PATIENT
  Age: 64 Year
  Sex: Female

DRUGS (1)
  1. LYNKUET [Suspect]
     Active Substance: ELINZANETANT
     Indication: Menopausal symptoms
     Dosage: 120 MG, QD
     Route: 048
     Dates: start: 20251212, end: 20251216

REACTIONS (3)
  - Somnolence [Recovering/Resolving]
  - Nausea [Recovering/Resolving]
  - Pain [Recovering/Resolving]

NARRATIVE: CASE EVENT DATE: 20251212
